FAERS Safety Report 6898208-9 (Version None)
Quarter: 2010Q3

REPORT INFORMATION
  Report Type: 
  Country: None (occurrence: None)
  Receive Date: 20100802
  Receipt Date: 20070921
  Transmission Date: 20110219
  Serious: Yes (Other)
  Sender: FDA-Public Use
  Company Number: US-PFIZER INC-2007077851

PATIENT
  Sex: Female
  Weight: 44.09 kg

DRUGS (6)
  1. LYRICA [Suspect]
     Indication: INFLAMMATION
     Dates: start: 20070501
  2. LYRICA [Suspect]
     Indication: BACK DISORDER
  3. PROTONIX [Concomitant]
  4. ACTONEL [Concomitant]
  5. PERCOCET [Concomitant]
  6. ADVIL LIQUI-GELS [Concomitant]

REACTIONS (5)
  - DRUG INTOLERANCE [None]
  - INFLAMMATION [None]
  - MOUTH ULCERATION [None]
  - SKIN ULCER [None]
  - THROMBOSIS [None]
